FAERS Safety Report 20021283 (Version 1)
Quarter: 2021Q4

REPORT INFORMATION
  Report Type: Spontaneous
  Country: US (occurrence: US)
  Receive Date: 20211101
  Receipt Date: 20211101
  Transmission Date: 20220303
  Serious: Yes (Disabling, Other)
  Sender: FDA-Public Use
  Company Number: US-LUPIN PHARMACEUTICALS INC.-2021-21181

PATIENT
  Sex: Female

DRUGS (1)
  1. LEVONORGESTREL [Suspect]
     Active Substance: LEVONORGESTREL
     Indication: Intrauterine contraception
     Dosage: 20 MICROGRAM, QD FOR 7 YEARS (INTRAUTERINE DEVICE)
     Route: 015

REACTIONS (3)
  - Chlamydial infection [Recovered/Resolved]
  - Infertility female [Recovered/Resolved]
  - Uterine adhesions [Recovered/Resolved]
